FAERS Safety Report 5275784-3 (Version None)
Quarter: 2007Q1

REPORT INFORMATION
  Report Type: 
  Country: None (occurrence: None)
  Receive Date: 20070326
  Receipt Date: 20070319
  Transmission Date: 20070707
  Serious: Yes (Other)
  Sender: FDA-Public Use
  Company Number: JP-JPN-A200701145

PATIENT
  Age: 67 Year
  Sex: Female

DRUGS (1)
  1. VALTREX [Suspect]
     Indication: HERPES ZOSTER
     Dosage: 1G PER DAY
     Route: 048
     Dates: start: 20070313, end: 20070314

REACTIONS (2)
  - ANOREXIA [None]
  - HALLUCINATION [None]
